FAERS Safety Report 9287047 (Version 2)
Quarter: 2013Q4

REPORT INFORMATION
  Report Type: Spontaneous
  Country: US (occurrence: US)
  Receive Date: 20130513
  Receipt Date: 20131018
  Transmission Date: 20140711
  Serious: Yes (Hospitalization)
  Sender: FDA-Public Use
  Company Number: US-B.I. PHARMACEUTICALS,INC./RIDGEFIELD-2013-BI-13180BP

PATIENT
  Age: 72 Year
  Sex: Male
  Weight: 113.4 kg

DRUGS (11)
  1. PRADAXA [Suspect]
     Indication: MYOCARDIAL INFARCTION
     Dosage: 300 MG
     Route: 048
     Dates: start: 201012, end: 20111003
  2. JANUVIA [Concomitant]
     Dosage: 50 MG
     Route: 048
     Dates: start: 2004
  3. IMDUR [Concomitant]
     Dosage: 60 MG
     Route: 048
     Dates: start: 2004
  4. METOPROLOL [Concomitant]
     Dosage: 25 MG
     Route: 048
     Dates: start: 2004
  5. GLIPIZIDE [Concomitant]
     Dosage: 10 MG
     Route: 048
     Dates: start: 2004
  6. COZAAR [Concomitant]
     Dosage: 50 MG
     Route: 048
     Dates: start: 2004
  7. LIPITOR [Concomitant]
     Dosage: 20 MG
     Route: 048
     Dates: start: 2004
  8. ACTOS [Concomitant]
     Dosage: 30 MG
     Route: 048
  9. NEXIUM [Concomitant]
     Route: 048
  10. CALCIUM CARBONATE [Concomitant]
     Dosage: 1200 MG
     Route: 048
  11. FISH OIL [Concomitant]
     Dosage: 2000 MG
     Route: 048

REACTIONS (2)
  - Gastrointestinal haemorrhage [Unknown]
  - Haemorrhagic anaemia [Unknown]
